FAERS Safety Report 7425539-6 (Version None)
Quarter: 2011Q2

REPORT INFORMATION
  Report Type: 
  Country: None (occurrence: None)
  Receive Date: 20110420
  Receipt Date: 20110413
  Transmission Date: 20111010
  Serious: Yes (Death)
  Sender: FDA-Public Use
  Company Number: PL-BAYER-2011-032758

PATIENT
  Age: 63 Year
  Sex: Male
  Weight: 56.5 kg

DRUGS (14)
  1. ALFACALCIDOL [Concomitant]
     Indication: HYPERPARATHYROIDISM
     Dosage: UNK
     Dates: start: 20090930
  2. METOPROLOL [Concomitant]
     Indication: HYPERTENSION
     Dosage: UNK
     Dates: start: 20090804
  3. FENOTEROL HYDROBROMIDE [Concomitant]
     Indication: DYSPNOEA
     Dosage: UNK
     Dates: start: 20100523
  4. BLINDED SORAFENIB (RAF KINASE INHIBITOR) [Suspect]
     Indication: METASTATIC RENAL CELL CARCINOMA
     Dosage: 400 MG, QD
     Route: 048
     Dates: start: 20090515, end: 20110202
  5. CALCIUM [Concomitant]
     Indication: HYPERPARATHYROIDISM
     Dosage: UNK
     Dates: start: 20090930
  6. BISOPROLOL FUMARATE [Concomitant]
     Indication: HYPERTENSION
     Dosage: UNK
     Dates: start: 20100523
  7. DIHYDROCODEINE BITARTRATE INJ [Concomitant]
     Indication: PAIN
     Dosage: UNK
     Dates: start: 20100601
  8. DIHYDROCODEINE BITARTRATE INJ [Concomitant]
     Indication: COUGH
  9. MEGESTROL ACETATE [Concomitant]
     Indication: CACHEXIA
     Dosage: UNK
     Dates: start: 20091005
  10. POTASSIUM [Concomitant]
     Indication: HYPOKALAEMIA
     Dosage: UNK
     Dates: start: 20090930
  11. FUROSEMID [Concomitant]
     Indication: DYSPNOEA
     Dosage: UNK
     Dates: start: 20091207
  12. SPIRONOLACTONE [Concomitant]
     Indication: DYSPNOEA
     Dosage: UNK
     Dates: start: 20100407
  13. METILDIGOXIN [Concomitant]
     Indication: CARDIAC FAILURE
     Dosage: UNK
     Dates: start: 20100523
  14. ALLOPURINOL [Concomitant]
     Indication: HYPERURICAEMIA
     Dosage: UNK
     Dates: start: 20100523

REACTIONS (1)
  - DEATH [None]
